FAERS Safety Report 23188509 (Version 1)
Quarter: 2023Q4

REPORT INFORMATION
  Report Type: Spontaneous
  Country: US (occurrence: US)
  Receive Date: 20231115
  Receipt Date: 20231115
  Transmission Date: 20240109
  Serious: No
  Sender: FDA-Public Use
  Company Number: US-PFIZER INC-202300366549

PATIENT
  Age: 57 Year
  Sex: Female

DRUGS (11)
  1. XELJANZ XR [Suspect]
     Active Substance: TOFACITINIB CITRATE
     Dosage: 11 MG, DAILY
     Route: 048
     Dates: start: 20190217
  2. METHOTREXATE [Concomitant]
     Active Substance: METHOTREXATE
  3. TRELEGY ELLIPTA [Concomitant]
     Active Substance: FLUTICASONE FUROATE\UMECLIDINIUM BROMIDE\VILANTEROL TRIFENATATE
  4. VITAMIN C [Concomitant]
     Active Substance: ASCORBIC ACID
  5. HYDROCHLOROTHIAZIDE [Concomitant]
     Active Substance: HYDROCHLOROTHIAZIDE
  6. FAMOTIDINE [Concomitant]
     Active Substance: FAMOTIDINE
  7. FOLIC ACID [Concomitant]
     Active Substance: FOLIC ACID
  8. LOSARTAN [Concomitant]
     Active Substance: LOSARTAN
  9. VITAMIN D2 [Concomitant]
     Active Substance: ERGOCALCIFEROL
  10. OMEGA-3 FATTY ACIDS [Concomitant]
     Active Substance: OMEGA-3 FATTY ACIDS
  11. METOPROLOL [Concomitant]
     Active Substance: METOPROLOL

REACTIONS (4)
  - Therapeutic product effect incomplete [Not Recovered/Not Resolved]
  - Disease progression [Not Recovered/Not Resolved]
  - Bronchitis [Unknown]
  - Nasopharyngitis [Unknown]
